FAERS Safety Report 6938407-0 (Version None)
Quarter: 2010Q3

REPORT INFORMATION
  Report Type: 
  Country: None (occurrence: None)
  Receive Date: 20100824
  Receipt Date: 20100810
  Transmission Date: 20110219
  Serious: Yes (Death, Hospitalization)
  Sender: FDA-Public Use
  Company Number: US-ELI_LILLY_AND_COMPANY-US201001005337

PATIENT
  Age: 83 Year
  Sex: Female

DRUGS (7)
  1. FORTEO [Suspect]
     Indication: OSTEOPOROSIS
     Dosage: 20 UG, DAILY (1/D)
     Route: 065
     Dates: start: 20091208, end: 20091221
  2. SINGULAIR [Concomitant]
     Dosage: UNK, UNKNOWN
     Route: 065
  3. GABAPENTINE [Concomitant]
     Dosage: UNK, UNKNOWN
     Route: 065
  4. CLONAZEPAM [Concomitant]
     Dosage: UNK, UNKNOWN
     Route: 065
  5. NEXIUM [Concomitant]
     Dosage: UNK, UNKNOWN
     Route: 065
  6. WARFARIN [Concomitant]
     Dosage: UNK, UNKNOWN
     Route: 065
  7. CALCIUM [Concomitant]
     Dosage: UNK, UNKNOWN
     Route: 065

REACTIONS (3)
  - PNEUMONIA [None]
  - RESPIRATORY ARREST [None]
  - RESPIRATORY FAILURE [None]
